FAERS Safety Report 16662578 (Version 1)
Quarter: 2019Q3

REPORT INFORMATION
  Report Type: Spontaneous
  Country: US (occurrence: US)
  Receive Date: 20190802
  Receipt Date: 20190802
  Transmission Date: 20191004
  Serious: No
  Sender: FDA-Public Use
  Company Number: None

PATIENT
  Age: 65 Year
  Sex: Female
  Weight: 81 kg

DRUGS (1)
  1. TRESIBA [Suspect]
     Active Substance: INSULIN DEGLUDEC
     Indication: TYPE 2 DIABETES MELLITUS
     Route: 058
     Dates: start: 20190412, end: 20190626

REACTIONS (5)
  - Fatigue [None]
  - Malaise [None]
  - Oedema peripheral [None]
  - Weight increased [None]
  - Injection site pain [None]

NARRATIVE: CASE EVENT DATE: 20190626
